FAERS Safety Report 12651681 (Version 1)
Quarter: 2016Q3

REPORT INFORMATION
  Report Type: Spontaneous
  Country: CN (occurrence: CN)
  Receive Date: 20160815
  Receipt Date: 20160815
  Transmission Date: 20161109
  Serious: Yes (Death, Hospitalization, Other)
  Sender: FDA-Public Use
  Company Number: CN-PFIZER INC-2016382514

PATIENT
  Age: 77 Year
  Sex: Male
  Weight: 65 kg

DRUGS (1)
  1. METHYLPREDNISOLONE SODIUM SUCCINATE. [Suspect]
     Active Substance: METHYLPREDNISOLONE SODIUM SUCCINATE
     Indication: ANTIINFLAMMATORY THERAPY
     Dosage: 40 MG EVERY 8 HOURS (Q/8H)
     Route: 041
     Dates: start: 20160319, end: 20160328

REACTIONS (4)
  - Respiratory failure [Fatal]
  - Opportunistic infection [Recovered/Resolved with Sequelae]
  - Immunosuppression [Unknown]
  - Acinetobacter test positive [Unknown]

NARRATIVE: CASE EVENT DATE: 20160328
